FAERS Safety Report 14300371 (Version 1)
Quarter: 2017Q4

REPORT INFORMATION
  Report Type: Spontaneous
  Country: US (occurrence: US)
  Receive Date: 20171218
  Receipt Date: 20171218
  Transmission Date: 20180321
  Serious: No
  Sender: FDA-Public Use
  Company Number: None

PATIENT
  Age: 53 Year
  Sex: Female

DRUGS (1)
  1. CAPECITABINE TAB 500MG [Suspect]
     Active Substance: CAPECITABINE
     Dosage: 1000MG BID FOR 1 WEEK ON, 1 WEEK OFF THE

REACTIONS (2)
  - Dehydration [None]
  - Dry skin [None]

NARRATIVE: CASE EVENT DATE: 20171218
